FAERS Safety Report 23783272 (Version 1)
Quarter: 2024Q2

REPORT INFORMATION
  Report Type: Spontaneous
  Country: US (occurrence: None)
  Receive Date: 20240424
  Receipt Date: 20240424
  Transmission Date: 20240716
  Serious: Yes (Hospitalization)
  Sender: FDA-Public Use
  Company Number: None

PATIENT
  Age: 54 Year
  Sex: Male
  Weight: 126 kg

DRUGS (1)
  1. LOVASTATIN [Suspect]
     Active Substance: LOVASTATIN
     Indication: Hyperlipidaemia
     Dosage: 20MG HS PO
     Route: 048
     Dates: start: 20230202, end: 20230410

REACTIONS (3)
  - Peripheral swelling [None]
  - Dyspnoea [None]
  - Rhabdomyolysis [None]

NARRATIVE: CASE EVENT DATE: 20230310
